FAERS Safety Report 8895954 (Version 1)
Quarter: 2012Q4

REPORT INFORMATION
  Report Type: 
  Country: US (occurrence: US)
  Receive Date: 20121108
  Receipt Date: 20121108
  Transmission Date: 20130627
  Serious: Yes (Hospitalization)
  Sender: FDA-Public Use
  Company Number: US-ACTELION-A-NJ2012-73882

PATIENT
  Age: 14 Year
  Sex: Female

DRUGS (6)
  1. TRACLEER [Suspect]
     Indication: PULMONARY ARTERIAL HYPERTENSION
     Dosage: UNK
     Route: 048
  2. SILDENAFIL [Concomitant]
  3. TYVASO [Concomitant]
  4. COUMADIN [Concomitant]
  5. LASIX [Concomitant]
  6. DIGOXIN [Concomitant]

REACTIONS (2)
  - Pancreatitis [Unknown]
  - Influenza [Unknown]
